FAERS Safety Report 13835333 (Version 1)
Quarter: 2017Q3

REPORT INFORMATION
  Report Type: Spontaneous
  Country: FR (occurrence: FR)
  Receive Date: 20170804
  Receipt Date: 20170804
  Transmission Date: 20171127
  Serious: Yes (Other)
  Sender: FDA-Public Use
  Company Number: FR-ACCORD-056840

PATIENT
  Age: 57 Year
  Sex: Male

DRUGS (8)
  1. CISPLATIN ACCORD [Suspect]
     Active Substance: CISPLATIN
     Indication: LARGE CELL LUNG CANCER METASTATIC
     Dosage: DOSE: 97 MG, ONCE PER CYCLE,??FIRST THREE COURSES
     Route: 042
     Dates: start: 20170323, end: 20170526
  2. DOCETAXEL HOSPIRA [Suspect]
     Active Substance: DOCETAXEL
     Indication: LARGE CELL LUNG CANCER METASTATIC
     Dosage: DOSE: 96 MG, ONCE PER CYCLE??FIRST THREE COURSES
     Route: 042
     Dates: start: 20170323, end: 20170526
  3. LYRICA [Concomitant]
     Active Substance: PREGABALIN
  4. PREDNISOLONE. [Concomitant]
     Active Substance: PREDNISOLONE
     Indication: ALLERGY PROPHYLAXIS
     Route: 048
     Dates: start: 20170526
  5. INEXIUM [Concomitant]
     Active Substance: ESOMEPRAZOLE
  6. EMEND [Concomitant]
     Active Substance: APREPITANT
     Indication: PROPHYLAXIS OF NAUSEA AND VOMITING
     Dosage: FOR ONE DAY
     Route: 048
     Dates: start: 20170526
  7. TRAMADOL. [Concomitant]
     Active Substance: TRAMADOL
  8. ONDANSETRON [Concomitant]
     Active Substance: ONDANSETRON
     Indication: PROPHYLAXIS OF NAUSEA AND VOMITING
     Dosage: FOR ONE DAY
     Route: 048
     Dates: start: 20170526

REACTIONS (1)
  - Palmar-plantar erythrodysaesthesia syndrome [Recovering/Resolving]

NARRATIVE: CASE EVENT DATE: 20170528
